FAERS Safety Report 14818581 (Version 1)
Quarter: 2018Q2

REPORT INFORMATION
  Report Type: Spontaneous
  Country: FR (occurrence: FR)
  Receive Date: 20180427
  Receipt Date: 20180427
  Transmission Date: 20180711
  Serious: Yes (Other)
  Sender: FDA-Public Use
  Company Number: FR-MERCK KGAA-2046699

PATIENT
  Age: 46 Year
  Sex: Female

DRUGS (1)
  1. NOVOTHYROX [Suspect]
     Active Substance: LEVOTHYROXINE SODIUM
     Indication: HYPERTHYROIDISM
     Dates: start: 201707

REACTIONS (28)
  - Decreased appetite [None]
  - Vomiting [None]
  - Myalgia [None]
  - Spinal pain [None]
  - Visual impairment [None]
  - Diarrhoea [None]
  - Pain [None]
  - Weight decreased [None]
  - Vision blurred [None]
  - Loss of libido [None]
  - Weight increased [None]
  - Alopecia [None]
  - Nausea [None]
  - Suicidal ideation [None]
  - Pain in extremity [None]
  - Eye disorder [None]
  - Abdominal distension [None]
  - Disorientation [None]
  - Onychoclasis [None]
  - Dizziness [None]
  - Gait disturbance [None]
  - Flatulence [None]
  - Muscle spasms [None]
  - Palpitations [None]
  - Asthenia [None]
  - Peripheral swelling [None]
  - Malaise [None]
  - Impaired driving ability [None]

NARRATIVE: CASE EVENT DATE: 201709
